FAERS Safety Report 7075182-6 (Version None)
Quarter: 2010Q4

REPORT INFORMATION
  Report Type: 
  Country: None (occurrence: None)
  Receive Date: 20101029
  Receipt Date: 20100603
  Transmission Date: 20110411
  Serious: No
  Sender: FDA-Public Use
  Company Number: US-WYE-H15001610

PATIENT
  Age: 55 Year
  Sex: Male
  Weight: 77.18 kg

DRUGS (1)
  1. ALAVERT [Suspect]
     Indication: HYPERSENSITIVITY
     Dosage: 1-3 TABLETS PER DAY
     Route: 048
     Dates: start: 20090101

REACTIONS (2)
  - DRUG INEFFECTIVE [None]
  - OVERDOSE [None]
